FAERS Safety Report 10559378 (Version 1)
Quarter: 2014Q4

REPORT INFORMATION
  Report Type: Spontaneous
  Country: DE (occurrence: DE)
  Receive Date: 20141103
  Receipt Date: 20141103
  Transmission Date: 20150529
  Serious: Yes (Other)
  Sender: FDA-Public Use
  Company Number: DE-AUROBINDO-AUR-APL-2014-11222

PATIENT
  Age: 32 Year
  Sex: Female
  Weight: 67 kg

DRUGS (3)
  1. ANAFRANIL [Suspect]
     Active Substance: CLOMIPRAMINE HYDROCHLORIDE
     Indication: SCHIZOPHRENIA, PARANOID TYPE
     Dosage: 75 MG, ONCE A DAY
     Route: 048
     Dates: start: 20130128, end: 20131026
  2. FOLIC ACID. [Concomitant]
     Active Substance: FOLIC ACID
     Indication: PROPHYLAXIS OF NEURAL TUBE DEFECT
     Dosage: 0.4 MG, ONCE A DAY
     Route: 048
  3. OLANZAPINE 7.5MG [Suspect]
     Active Substance: OLANZAPINE
     Indication: SCHIZOPHRENIA, PARANOID TYPE
     Dosage: 7.5 MG, ONCE A DAY
     Route: 048
     Dates: start: 20130128, end: 20131026

REACTIONS (2)
  - Gestational diabetes [Recovered/Resolved]
  - Maternal exposure during pregnancy [Unknown]
